FAERS Safety Report 8998350 (Version 3)
Quarter: 2013Q3

REPORT INFORMATION
  Report Type: Spontaneous
  Country: PE (occurrence: PE)
  Receive Date: 20130105
  Receipt Date: 20130711
  Transmission Date: 20140515
  Serious: Yes (Other)
  Sender: FDA-Public Use
  Company Number: PE-JNJFOC-20121212732

PATIENT
  Age: 36 Year
  Sex: Female
  Weight: 45 kg

DRUGS (7)
  1. REMICADE [Suspect]
     Indication: RHEUMATOID ARTHRITIS
     Route: 042
     Dates: end: 20111124
  2. REMICADE [Suspect]
     Indication: RHEUMATOID ARTHRITIS
     Route: 042
     Dates: start: 20120131, end: 20121221
  3. METHOTREXATE [Concomitant]
     Route: 065
  4. SULPHASALAZINE [Concomitant]
     Route: 065
  5. INDOMETHACIN [Concomitant]
     Route: 065
  6. CALCIUM [Concomitant]
     Route: 065
  7. FOLIC ACID [Concomitant]
     Route: 065

REACTIONS (11)
  - Respiratory distress [Recovered/Resolved]
  - Hip surgery [Unknown]
  - Blood pressure decreased [Recovered/Resolved]
  - Infusion related reaction [Recovered/Resolved]
  - Dyspnoea [Recovered/Resolved]
  - Hypotension [Recovered/Resolved]
  - Face oedema [Recovered/Resolved]
  - Chest pain [Recovered/Resolved]
  - Arthralgia [Unknown]
  - Eye swelling [Recovered/Resolved]
  - Rash [Recovered/Resolved]
